FAERS Safety Report 10435790 (Version 1)
Quarter: 2014Q3

REPORT INFORMATION
  Report Type: Spontaneous
  Country: IT (occurrence: IT)
  Receive Date: 20140908
  Receipt Date: 20140908
  Transmission Date: 20150326
  Serious: Yes (Other)
  Sender: FDA-Public Use
  Company Number: IT-JNJFOC-20140826150

PATIENT
  Age: 40 Year
  Sex: Female

DRUGS (1)
  1. DOXORUBICIN HYDROCHLORIDE (CAELYX) [Suspect]
     Active Substance: DOXORUBICIN HYDROCHLORIDE
     Indication: BREAST CANCER METASTATIC
     Route: 042
     Dates: start: 20140609, end: 20140804

REACTIONS (2)
  - Drug eruption [Unknown]
  - Skin ulcer [Unknown]

NARRATIVE: CASE EVENT DATE: 20140812
